FAERS Safety Report 17116388 (Version 1)
Quarter: 2019Q4

REPORT INFORMATION
  Report Type: Report from Study
  Country: FR (occurrence: FR)
  Receive Date: 20191205
  Receipt Date: 20191205
  Transmission Date: 20200122
  Serious: Yes (Hospitalization)
  Sender: FDA-Public Use
  Company Number: FR-JNJFOC-20191137450

PATIENT
  Age: 57 Year
  Sex: Male
  Weight: 90.6 kg

DRUGS (18)
  1. FOLIC ACID. [Concomitant]
     Active Substance: FOLIC ACID
     Route: 065
  2. NOVORAPID [Concomitant]
     Active Substance: INSULIN ASPART
     Indication: TYPE 2 DIABETES MELLITUS
     Route: 065
     Dates: start: 2019
  3. LERCAN [Concomitant]
     Active Substance: LERCANIDIPINE
  4. JANUVIA [Concomitant]
     Active Substance: SITAGLIPTIN PHOSPHATE
     Indication: DYSLIPIDAEMIA
     Route: 048
     Dates: end: 20190809
  5. BACTRIM [Concomitant]
     Active Substance: SULFAMETHOXAZOLE\TRIMETHOPRIM
     Dosage: 1/2 TABLET MONDAYS, WEDNESDAYS AND FRIDAYS
     Route: 065
  6. VALACYCLOVIR [Concomitant]
     Active Substance: VALACYCLOVIR HYDROCHLORIDE
     Dosage: 1 DAY/2
     Route: 065
  7. DEXAMETHASONE. [Suspect]
     Active Substance: DEXAMETHASONE
     Indication: PLASMA CELL MYELOMA
     Dosage: LAST DOSE ADMINISTERED ON 01/AUG/2019
     Route: 048
     Dates: start: 20190411
  8. BISOCE [Concomitant]
     Active Substance: BISOPROLOL
     Indication: HYPERTENSION
     Dosage: LAST DOSE ADMINISTERED ON 09-AUG-2019
     Route: 048
  9. EUPRESSYL [Concomitant]
     Active Substance: URAPIDIL
     Indication: HYPERTENSION
     Dosage: LAST DOSE ON 09-AUG-2019
  10. LERCAN [Concomitant]
     Active Substance: LERCANIDIPINE
     Indication: HYPERTENSION
     Dosage: LAST DOSE ADMINISTERED ON 09-AUG-2019
     Route: 048
  11. ABASAGLAR [Concomitant]
     Active Substance: INSULIN GLARGINE
     Indication: TYPE 2 DIABETES MELLITUS
     Dosage: 12 UNITS AT NIGHT
     Route: 065
     Dates: start: 2019
  12. IXAZOMIB [Concomitant]
     Active Substance: IXAZOMIB
     Indication: PLASMA CELL MYELOMA
     Dosage: LAST DOSE ADMINISTERED ON 04-AUG-2019?C6 DAY 11
     Route: 048
     Dates: start: 20190411
  13. LENALIDOMIDE [Concomitant]
     Active Substance: LENALIDOMIDE
     Indication: PLASMA CELL MYELOMA
     Dosage: LAST DOSE ADMINISTERED ON 07-AUG-2019?C6 DAY 14
     Route: 048
     Dates: start: 20190411
  14. TAHOR [Concomitant]
     Active Substance: ATORVASTATIN CALCIUM
     Indication: HYPERLIPIDAEMIA
     Route: 048
     Dates: end: 20190809
  15. TAHOR [Concomitant]
     Active Substance: ATORVASTATIN CALCIUM
  16. KARDEGIC [Concomitant]
     Active Substance: ASPIRIN DL-LYSINE
     Route: 065
  17. CALCIPARINE [Concomitant]
     Active Substance: HEPARIN CALCIUM
     Dosage: MORNING AND NIGHT
     Route: 065
  18. DARATUMUMAB [Suspect]
     Active Substance: DARATUMUMAB
     Indication: PLASMA CELL MYELOMA
     Dosage: MOST RECENT DOSE 08-AUG-2019?C6D15
     Route: 042
     Dates: start: 20190411

REACTIONS (1)
  - Hypertriglyceridaemia [Not Recovered/Not Resolved]

NARRATIVE: CASE EVENT DATE: 20190809
